FAERS Safety Report 19142909 (Version 1)
Quarter: 2021Q2

REPORT INFORMATION
  Report Type: Spontaneous
  Country: CN (occurrence: CN)
  Receive Date: 20210415
  Receipt Date: 20210415
  Transmission Date: 20210717
  Serious: Yes (Other)
  Sender: FDA-Public Use
  Company Number: CN-PFIZER INC-2021363889

PATIENT
  Age: 20 Year
  Sex: Male

DRUGS (2)
  1. CYTOSAR [Suspect]
     Active Substance: CYTARABINE
     Indication: ACUTE LYMPHOCYTIC LEUKAEMIA
     Dosage: 0.5 G, 2X/DAY
     Route: 041
     Dates: start: 20020725, end: 20020729
  2. SODIUM CHLORIDE. [Concomitant]
     Active Substance: SODIUM CHLORIDE
     Dosage: 500 ML, 2X/DAY
     Route: 041
     Dates: start: 20020725, end: 20020729

REACTIONS (3)
  - Pigmentation disorder [Unknown]
  - Myalgia [Recovering/Resolving]
  - Cytarabine syndrome [Recovering/Resolving]

NARRATIVE: CASE EVENT DATE: 20020729
